FAERS Safety Report 17419533 (Version 1)
Quarter: 2020Q1

REPORT INFORMATION
  Report Type: Spontaneous
  Country: DE (occurrence: DE)
  Receive Date: 20200214
  Receipt Date: 20200214
  Transmission Date: 20200409
  Serious: Yes (Hospitalization)
  Sender: FDA-Public Use
  Company Number: DE-STRIDES ARCOLAB LIMITED-2020SP001245

PATIENT
  Age: 40 Year
  Sex: Female

DRUGS (7)
  1. DIANEAL PDG4 [Concomitant]
     Dosage: UNK; DAY TIME DIANEAL PDG4 1.36 PERCENT
     Route: 065
     Dates: start: 201409
  2. EXTRANEAL [Concomitant]
     Active Substance: CALCIUM CHLORIDE\ICODEXTRIN\MAGNESIUM CHLORIDE\SODIUM CHLORIDE\SODIUM LACTATE
     Indication: PRODUCT USED FOR UNKNOWN INDICATION
     Dosage: UNK, OVERNIGHT
     Route: 065
     Dates: start: 201409
  3. CALCIUM ACETATE. [Concomitant]
     Active Substance: CALCIUM ACETATE
     Indication: PRODUCT USED FOR UNKNOWN INDICATION
     Dosage: 1900 MILLIGRAM PER DAY
     Route: 065
  4. SEVELAMER CARBONATE. [Concomitant]
     Active Substance: SEVELAMER CARBONATE
     Indication: PRODUCT USED FOR UNKNOWN INDICATION
     Dosage: 3200 MILLIGRAM PER DAY
     Route: 065
  5. CALCITRIOL. [Suspect]
     Active Substance: CALCITRIOL
     Indication: VITAMIN D DEFICIENCY
     Dosage: 0.5 MICROGRAM, TWICE A WEEK
     Route: 048
  6. COLECALCIFEROL [Suspect]
     Active Substance: CHOLECALCIFEROL
     Indication: VITAMIN D DEFICIENCY
     Dosage: 20000 INTERNATIONAL UNIT, 14 DAYS
     Route: 048
  7. DIANEAL PDG4 [Concomitant]
     Indication: PRODUCT USED FOR UNKNOWN INDICATION
     Dosage: UNK; DAY TIME DIANEAL PDG4 2.27 PERCENT
     Route: 065
     Dates: start: 201409

REACTIONS (6)
  - Arthralgia [Unknown]
  - Induration [Unknown]
  - Mobility decreased [Unknown]
  - Calcinosis [Recovered/Resolved]
  - Joint swelling [Unknown]
  - Pain [Unknown]

NARRATIVE: CASE EVENT DATE: 201609
